FAERS Safety Report 23784694 (Version 1)
Quarter: 2024Q2

REPORT INFORMATION
  Report Type: Spontaneous
  Country: CA (occurrence: CA)
  Receive Date: 20240425
  Receipt Date: 20240425
  Transmission Date: 20240716
  Serious: Yes (Other)
  Sender: FDA-Public Use
  Company Number: CA-TEVA-VS-3188288

PATIENT
  Age: 79 Year
  Sex: Female
  Weight: 57 kg

DRUGS (1)
  1. PREDNISONE [Suspect]
     Active Substance: PREDNISONE
     Indication: Arthritis
     Route: 048

REACTIONS (5)
  - Vertigo [Recovered/Resolved]
  - Constipation [Recovered/Resolved]
  - Dry skin [Recovered/Resolved]
  - Fatigue [Recovered/Resolved]
  - Hypothyroidism [Recovered/Resolved]
